FAERS Safety Report 19084397 (Version 1)
Quarter: 2021Q2

REPORT INFORMATION
  Report Type: Spontaneous
  Country: CN (occurrence: CN)
  Receive Date: 20210401
  Receipt Date: 20210401
  Transmission Date: 20210717
  Serious: Yes (Other)
  Sender: FDA-Public Use
  Company Number: CN-ASTRAZENECA-2021A225232

PATIENT
  Age: 8917 Day
  Sex: Female
  Weight: 46 kg

DRUGS (3)
  1. BENZYLPENICILLIN SODIUM [Suspect]
     Active Substance: PENICILLIN G SODIUM
     Indication: PRODUCT DISPENSING ISSUE
     Dosage: 6.4 MILLION U, DAILY
     Route: 041
     Dates: start: 20210310, end: 20210310
  2. LOSEC [Suspect]
     Active Substance: OMEPRAZOLE
     Indication: GASTRIC INFECTION
     Route: 048
     Dates: start: 20210302, end: 20210310
  3. LIZHU GASTRIC TRIPLE (BISMUTH POTASSIUM CITRATE) [Suspect]
     Active Substance: BISMUTH SUBCITRATE
     Indication: HELICOBACTER INFECTION
     Route: 048
     Dates: start: 20210302, end: 20210310

REACTIONS (3)
  - Pruritus [Recovered/Resolved]
  - Rash erythematous [Recovered/Resolved]
  - Oedema [Recovered/Resolved]

NARRATIVE: CASE EVENT DATE: 20210310
